FAERS Safety Report 4414347-6 (Version None)
Quarter: 2004Q3

REPORT INFORMATION
  Report Type: 
  Country: None (occurrence: None)
  Receive Date: 20040701
  Receipt Date: 20040213
  Transmission Date: 20050211
  Serious: No
  Sender: FDA-Public Use
  Company Number: VISP-PR-0402S-0059(0)

PATIENT
  Age: 79 Year
  Sex: Female

DRUGS (1)
  1. VISIPAQUE [Suspect]
     Indication: CAROTID ARTERY OCCLUSION
     Dosage: 195 ML, SINGLE DOSE, I.A.
     Route: 014
     Dates: start: 20040213, end: 20040213

REACTIONS (2)
  - BLINDNESS TRANSIENT [None]
  - PRURITUS [None]
